FAERS Safety Report 9279499 (Version 3)
Quarter: 2015Q4

REPORT INFORMATION
  Report Type: Report from Study
  Country: US (occurrence: US)
  Receive Date: 20130508
  Receipt Date: 20151215
  Transmission Date: 20160305
  Serious: Yes (Death)
  Sender: FDA-Public Use
  Company Number: US-ROCHE-1222682

PATIENT
  Sex: Female

DRUGS (16)
  1. TAXOTERE [Concomitant]
     Active Substance: DOCETAXEL
     Route: 065
     Dates: start: 201004, end: 201012
  2. DOXIL [Concomitant]
     Active Substance: DOXORUBICIN HYDROCHLORIDE
     Route: 065
     Dates: start: 20120731
  3. FEMARA [Concomitant]
     Active Substance: LETROZOLE
     Route: 065
     Dates: start: 20110208, end: 20110811
  4. ABRAXANE [Concomitant]
     Active Substance: PACLITAXEL
     Dosage: 260 MG/M2
     Route: 042
  5. AVASTIN [Suspect]
     Active Substance: BEVACIZUMAB
     Indication: METASTASES TO NERVOUS SYSTEM
  6. CARBOPLATIN. [Concomitant]
     Active Substance: CARBOPLATIN
     Route: 065
     Dates: start: 201004, end: 201012
  7. NAVELBINE [Concomitant]
     Active Substance: VINORELBINE TARTRATE
     Route: 065
     Dates: start: 20120119, end: 201205
  8. FASLODEX [Concomitant]
     Active Substance: FULVESTRANT
     Route: 065
     Dates: start: 20110811, end: 20120105
  9. AVASTIN [Suspect]
     Active Substance: BEVACIZUMAB
     Indication: BREAST CANCER
     Dosage: 10 MG/KG IN 0.9% SODIUM CHLORIDE 100 ML, INFUSED OVER 1 HOUR 12 MINUTES
     Route: 042
     Dates: start: 201004, end: 20120719
  10. TYKERB [Concomitant]
     Active Substance: LAPATINIB DITOSYLATE
     Route: 065
     Dates: start: 20110822, end: 20120105
  11. GEMZAR [Concomitant]
     Active Substance: GEMCITABINE HYDROCHLORIDE
     Route: 065
     Dates: start: 20120119, end: 201205
  12. DEXAMETHASONE. [Concomitant]
     Active Substance: DEXAMETHASONE
  13. XELODA [Suspect]
     Active Substance: CAPECITABINE
     Indication: BREAST CANCER
     Route: 065
     Dates: start: 20110822, end: 20120105
  14. HERCEPTIN [Suspect]
     Active Substance: TRASTUZUMAB
     Indication: BREAST CANCER
     Route: 065
     Dates: start: 20101214, end: 20110811
  15. KYTRIL [Suspect]
     Active Substance: GRANISETRON HYDROCHLORIDE
     Indication: BREAST CANCER
     Dosage: OVER 1 MINUTE BY IV PUSH
     Route: 042
  16. DECADRON [Concomitant]
     Active Substance: DEXAMETHASONE
     Dosage: IN 0.9% SODIUM CHLORIDE 50 ML
     Route: 042

REACTIONS (1)
  - Breast cancer [Fatal]
